FAERS Safety Report 7454763-1 (Version None)
Quarter: 2011Q2

REPORT INFORMATION
  Report Type: 
  Country: None (occurrence: None)
  Receive Date: 20110503
  Receipt Date: 20100610
  Transmission Date: 20111010
  Serious: Yes (Other)
  Sender: FDA-Public Use
  Company Number: US-PFIZER INC-2010054527

PATIENT
  Sex: Female
  Weight: 78.912 kg

DRUGS (8)
  1. LORATADINE [Concomitant]
  2. AMBIEN [Concomitant]
  3. STADOL [Concomitant]
  4. POTASSIUM [Concomitant]
  5. TOPAMAX [Concomitant]
  6. DIAMOX [Concomitant]
     Dosage: 250 MG, 2X/DAY
  7. DEPO-PROVERA [Suspect]
     Indication: OFF LABEL USE
     Dosage: UNK
     Dates: start: 20090911
  8. DEPO-PROVERA [Suspect]
     Indication: MENSTRUATION IRREGULAR

REACTIONS (1)
  - HEADACHE [None]
